FAERS Safety Report 6259142-0 (Version None)
Quarter: 2009Q3

REPORT INFORMATION
  Report Type: 
  Country: None (occurrence: None)
  Receive Date: 20090707
  Receipt Date: 20090707
  Transmission Date: 20100115
  Serious: Yes (Death)
  Sender: FDA-Public Use
  Company Number: US-ROXANE LABORATORIES, INC.-2009-RO-00666RO

PATIENT
  Age: 28 Year

DRUGS (1)
  1. DOLOPHINE TABLETS (METHADONE HCL TABLETS USP), 5 MG [Suspect]

REACTIONS (1)
  - MULTIPLE DRUG OVERDOSE ACCIDENTAL [None]
